FAERS Safety Report 5093456-5 (Version None)
Quarter: 2006Q3

REPORT INFORMATION
  Report Type: 
  Country: None (occurrence: None)
  Receive Date: 20060828
  Receipt Date: 20060810
  Transmission Date: 20061208
  Serious: Yes (Hospitalization)
  Sender: FDA-Public Use
  Company Number: S06-FRA-03363-01

PATIENT
  Age: 82 Year
  Sex: Female

DRUGS (11)
  1. CITALOPRAM HYDROBROMIDE [Suspect]
     Dosage: 20 MG BID PO
     Route: 048
     Dates: end: 20031120
  2. DEPAKENE [Suspect]
     Dosage: 600 MG QD PO
     Route: 048
     Dates: end: 20031120
  3. LEXOMIL (BROMAZEPAM) [Suspect]
     Dosage: 0.75 MG QD PO
     Route: 048
     Dates: end: 20031120
  4. OXAZEPAM [Suspect]
     Dosage: 50 MG QD PO
     Route: 048
     Dates: end: 20031120
  5. UMULINE (INSULIN HUMAN ZINC SUSPENSION) [Concomitant]
  6. LOZOL [Concomitant]
  7. PEPSANE [Concomitant]
  8. TRINIPATCH (GLYCERYL TRINITRATE) [Concomitant]
  9. MEDIATENSYL (URAPIDIL) [Concomitant]
  10. GABACET (PIRACETAM) [Concomitant]
  11. AMITRIPTYLINE HCL [Concomitant]

REACTIONS (4)
  - CARDIAC FAILURE [None]
  - FALL [None]
  - FEMUR FRACTURE [None]
  - OBESITY [None]
